FAERS Safety Report 5858268-0 (Version None)
Quarter: 2008Q3

REPORT INFORMATION
  Report Type: 
  Country: None (occurrence: None)
  Receive Date: 20080826
  Receipt Date: 20080815
  Transmission Date: 20090109
  Serious: Yes (Death)
  Sender: FDA-Public Use
  Company Number: A0744294A

PATIENT
  Sex: Male

DRUGS (5)
  1. BUPROPION HCL [Suspect]
     Indication: DRUG USE FOR UNKNOWN INDICATION
     Route: 048
     Dates: end: 20061215
  2. ACTIQ [Suspect]
     Indication: NECK PAIN
     Dosage: 800MCG AS REQUIRED
     Route: 048
     Dates: start: 20040129, end: 20061215
  3. METOPROLOL TARTRATE [Suspect]
     Indication: DRUG USE FOR UNKNOWN INDICATION
     Route: 065
     Dates: end: 20061215
  4. SERTRALINE [Suspect]
     Indication: DRUG USE FOR UNKNOWN INDICATION
     Route: 065
     Dates: end: 20061215
  5. DURAGESIC-100 [Suspect]
     Indication: PAIN
     Dates: start: 20031104

REACTIONS (1)
  - DEATH [None]
